FAERS Safety Report 8148655 (Version 2)
Quarter: 2013Q1

REPORT INFORMATION
  Report Type: Spontaneous
  Country: US (occurrence: US)
  Receive Date: 20110922
  Receipt Date: 20130218
  Transmission Date: 20140127
  Serious: Yes (Other)
  Sender: FDA-Public Use
  Company Number: US-ASTRAZENECA-2011SE12649

PATIENT
  Age: 40 Year
  Sex: Female

DRUGS (9)
  1. SEROQUEL [Suspect]
     Dosage: 50 MG TO 550 MG
     Route: 048
     Dates: start: 20011213
  2. LITHIUM [Concomitant]
     Dosage: 300 MG IN THE MORNING AND 600 MG IN THE EVENING
     Dates: start: 20011213
  3. TOPAMAX [Concomitant]
     Dates: start: 20011213
  4. TRAZADONE [Concomitant]
     Dosage: 50 MG IN THE EVENING
     Dates: start: 20011213
  5. KEFLEX [Concomitant]
     Indication: PHARYNGITIS
     Dates: start: 20011213
  6. AMBIEN [Concomitant]
     Indication: INSOMNIA
     Dosage: PRN
     Dates: start: 20011213
  7. CLONIDINE [Concomitant]
     Dates: start: 20011213
  8. LOTENSIN [Concomitant]
     Dates: start: 20011213
  9. OLANZAPINE [Concomitant]
     Dosage: 7.5 MG IN THE EVENING
     Dates: start: 20011224

REACTIONS (3)
  - Pancreatitis [Unknown]
  - Diabetic coma [Unknown]
  - Type 2 diabetes mellitus [Unknown]
